FAERS Safety Report 8585832-0 (Version None)
Quarter: 2012Q3

REPORT INFORMATION
  Report Type: 
  Country: None (occurrence: None)
  Receive Date: 20120802
  Receipt Date: 20120802
  Transmission Date: 20120928
  Serious: Yes (Hospitalization)
  Sender: FDA-Public Use
  Company Number: None

PATIENT
  Sex: Male
  Weight: 59 kg

DRUGS (2)
  1. WARFARIN SODIUM [Suspect]
     Indication: ATRIAL FIBRILLATION
     Dosage: 10MG DAILY PO
     Route: 048
     Dates: start: 20120726, end: 20120727
  2. RIVAROXABAN 20MG JANNSEN [Suspect]
     Indication: ATRIAL FIBRILLATION
     Dosage: 20MG DAILY PO
     Route: 048
     Dates: start: 20120728, end: 20120730

REACTIONS (2)
  - INTERNATIONAL NORMALISED RATIO INCREASED [None]
  - MELAENA [None]
